FAERS Safety Report 8179777-8 (Version None)
Quarter: 2012Q1

REPORT INFORMATION
  Report Type: 
  Country: None (occurrence: None)
  Receive Date: 20120229
  Receipt Date: 20120213
  Transmission Date: 20120608
  Serious: No
  Sender: FDA-Public Use
  Company Number: OPER20120092

PATIENT
  Age: 55 Year
  Sex: Male

DRUGS (2)
  1. ROXICODONE (OXYCODONE HYDROCHLORIDE) (30 MILLIGRAM) (OXYCODONE HYDROCH [Concomitant]
  2. OPANA ER [Suspect]
     Indication: PAIN
     Dosage: 120 MG, 3 IN 1 D, ORAL
     Route: 048
     Dates: start: 20100101

REACTIONS (3)
  - PAIN [None]
  - PRODUCT QUALITY ISSUE [None]
  - FALL [None]
